FAERS Safety Report 5032546-X (Version None)
Quarter: 2006Q2

REPORT INFORMATION
  Report Type: 
  Country: None (occurrence: None)
  Receive Date: 20060622
  Receipt Date: 20060505
  Transmission Date: 20061013
  Serious: Yes (Disabling)
  Sender: FDA-Public Use
  Company Number: 2006SE02621

PATIENT
  Age: 5400 Day
  Sex: Male

DRUGS (4)
  1. PULMICORT [Suspect]
     Route: 055
     Dates: start: 20020101
  2. PULMICORT [Suspect]
     Route: 055
     Dates: start: 20061101
  3. ANTIHISTAMINES [Concomitant]
  4. BRICANYL [Concomitant]

REACTIONS (1)
  - DENTAL CARIES [None]
